FAERS Safety Report 9604271 (Version 5)
Quarter: 2014Q2

REPORT INFORMATION
  Report Type: Report from Study
  Country: US (occurrence: US)
  Receive Date: 20131008
  Receipt Date: 20140506
  Transmission Date: 20141212
  Serious: Yes (Other)
  Sender: FDA-Public Use
  Company Number: PHEH2013US019709

PATIENT
  Age: 54 Year
  Sex: Female
  Weight: 95.24 kg

DRUGS (29)
  1. GILENYA [Suspect]
     Indication: MULTIPLE SCLEROSIS
     Dosage: 0.5 MG, QD
     Route: 048
     Dates: start: 20130906
  2. AMPYRA [Suspect]
     Dosage: 10 MG, BID
     Route: 048
     Dates: start: 20130731
  3. VICTOZA [Concomitant]
  4. METFORMIN [Concomitant]
     Dosage: 500 MG, UNK
  5. OMEPRAZOLE [Concomitant]
     Dosage: 10 M, UNK
  6. SYNTHROID [Concomitant]
     Dosage: 100 MG, UNK
  7. CYMBALTA [Concomitant]
     Dosage: 60 MG, UNK
  8. VAGIFEM [Concomitant]
     Dosage: 10 MG, UNK
  9. CO Q 10//UBIDECARENONE [Concomitant]
     Dosage: 100 MG, UNK
  10. IRON [Concomitant]
  11. VITAMIN B COMPLEX [Concomitant]
  12. CALCIUM [Concomitant]
  13. VITAMIN D3 [Concomitant]
     Dosage: 10000 U, UNK
  14. BIOTIN [Concomitant]
     Dosage: 2500 UG, UNK
  15. VITAMIN B12 [Concomitant]
     Dosage: 1 MG, UNK
  16. TRAZODONE [Concomitant]
     Dosage: 50 MG, UNK
  17. ASTELIN [Concomitant]
     Dosage: 137 UG, UNK
  18. ALBUTEROL [Concomitant]
     Dosage: 9 UG, UNK
  19. ESTRACE [Concomitant]
     Dosage: 1 MG, UNK
  20. DILAUDID [Concomitant]
     Dosage: 2 MG, UNK
  21. LEVEMIR [Concomitant]
  22. VIVELLE-DOT [Concomitant]
     Dosage: 0.025 MG, UNK
  23. TRIPLE FLEX [Concomitant]
  24. AMRIX [Concomitant]
     Dosage: 15 MG, UNK
  25. PROBIOTIC//BIFIDOBACTERIUM LACTIS [Concomitant]
  26. ASPIRIN [Concomitant]
  27. AMPREXA [Concomitant]
  28. COLON CARE                         /07880901/ [Concomitant]
  29. TREXIMET [Concomitant]

REACTIONS (23)
  - Trigeminal neuralgia [Unknown]
  - Blood pressure increased [Unknown]
  - Abdominal distension [Unknown]
  - Faeces pale [Unknown]
  - Dry eye [Unknown]
  - Dry throat [Unknown]
  - Fatigue [Not Recovered/Not Resolved]
  - Arthralgia [Unknown]
  - Nausea [Unknown]
  - Vomiting [Unknown]
  - Fall [Unknown]
  - Back pain [Not Recovered/Not Resolved]
  - Cough [Not Recovered/Not Resolved]
  - Nasopharyngitis [Unknown]
  - Multiple sclerosis relapse [Unknown]
  - Memory impairment [Not Recovered/Not Resolved]
  - Feeling abnormal [Unknown]
  - Dysphemia [Unknown]
  - Muscle spasms [Not Recovered/Not Resolved]
  - Pain [Unknown]
  - Migraine [Unknown]
  - Vision blurred [Unknown]
  - Balance disorder [Not Recovered/Not Resolved]
